FAERS Safety Report 15806680 (Version 2)
Quarter: 2019Q1

REPORT INFORMATION
  Report Type: Spontaneous
  Country: US (occurrence: US)
  Receive Date: 20190110
  Receipt Date: 20190116
  Transmission Date: 20190417
  Serious: Yes (Other)
  Sender: FDA-Public Use
  Company Number: PHEH2019US000944

PATIENT
  Age: 15 Year
  Sex: Male
  Weight: 70 kg

DRUGS (18)
  1. ACETYLCYSTEINE. [Concomitant]
     Active Substance: ACETYLCYSTEINE
     Indication: PRODUCT USED FOR UNKNOWN INDICATION
     Dosage: 600 MG, BID
     Route: 048
  2. ALBUTEROL. [Concomitant]
     Active Substance: ALBUTEROL
     Indication: CYSTIC FIBROSIS LUNG
     Dosage: 2 DF, BID
     Route: 055
  3. SODIUM CHLORIDE. [Concomitant]
     Active Substance: SODIUM CHLORIDE
     Indication: CYSTIC FIBROSIS LUNG
     Dosage: 4 ML, BID
     Route: 055
  4. ADVAIR HFA [Concomitant]
     Active Substance: FLUTICASONE PROPIONATE\SALMETEROL XINAFOATE
     Indication: ASTHMA
     Dosage: 2 DF, BID (PUFF)
     Route: 055
  5. TEDIZOLID [Concomitant]
     Active Substance: TEDIZOLID
     Indication: MYCOBACTERIUM ABSCESSUS INFECTION
     Dosage: 200 MG, QD
     Route: 048
     Dates: start: 20180514
  6. TEDIZOLID [Concomitant]
     Active Substance: TEDIZOLID
     Indication: LUNG INFECTION
  7. URSODIOL. [Concomitant]
     Active Substance: URSODIOL
     Indication: CHOLESTASIS
     Dosage: 300 MG, BID
     Route: 048
  8. AMIKACIN. [Suspect]
     Active Substance: AMIKACIN
     Indication: LUNG INFECTION
  9. ALPHA LIPOIC ACID [Concomitant]
     Active Substance: .ALPHA.-LIPOIC ACID
     Indication: PRODUCT USED FOR UNKNOWN INDICATION
     Dosage: UNK
     Route: 048
  10. DORNASE [Concomitant]
     Active Substance: STREPTODORNASE\STREPTOKINASE
     Indication: CYSTIC FIBROSIS LUNG
     Dosage: 2.5 MG, QD
     Route: 055
  11. AMIKACIN. [Suspect]
     Active Substance: AMIKACIN
     Indication: MYCOBACTERIUM ABSCESSUS INFECTION
     Dosage: 590 MG, QD
     Route: 042
     Dates: start: 20171019
  12. VITAMIN D3 [Concomitant]
     Active Substance: CHOLECALCIFEROL
     Indication: PRODUCT USED FOR UNKNOWN INDICATION
     Dosage: 1000 U, QD
     Route: 048
  13. CLOFAZIMINE [Suspect]
     Active Substance: CLOFAZIMINE
     Indication: MYCOBACTERIUM ABSCESSUS INFECTION
     Dosage: 100 MG, QD
     Route: 048
     Dates: start: 20131024
  14. RIFABUTIN. [Concomitant]
     Active Substance: RIFABUTIN
     Indication: MYCOBACTERIUM ABSCESSUS INFECTION
     Dosage: 300 MG, QD
     Route: 048
     Dates: start: 20180927
  15. RANITIDINE. [Concomitant]
     Active Substance: RANITIDINE
     Indication: GASTROOESOPHAGEAL REFLUX DISEASE
     Dosage: 150 MG, BID
     Route: 048
  16. CLOFAZIMINE [Suspect]
     Active Substance: CLOFAZIMINE
     Indication: LUNG INFECTION
  17. RIFABUTIN. [Concomitant]
     Active Substance: RIFABUTIN
     Indication: LUNG INFECTION
  18. DRONABINOL. [Concomitant]
     Active Substance: DRONABINOL
     Indication: NAUSEA
     Dosage: 5 MG, BID
     Route: 048

REACTIONS (2)
  - Tinnitus [Not Recovered/Not Resolved]
  - Deafness [Not Recovered/Not Resolved]

NARRATIVE: CASE EVENT DATE: 20181225
